FAERS Safety Report 5519697-8 (Version None)
Quarter: 2007Q4

REPORT INFORMATION
  Report Type: 
  Country: None (occurrence: None)
  Receive Date: 20071116
  Receipt Date: 20071106
  Transmission Date: 20080405
  Serious: Yes (Death, Life-Threatening, Hospitalization)
  Sender: FDA-Public Use
  Company Number: FR-JNJFOC-20071103904

PATIENT
  Sex: Male

DRUGS (14)
  1. TOPALGIC LP [Suspect]
     Indication: BACK PAIN
     Route: 048
     Dates: start: 20070911, end: 20070917
  2. TRAMADOL HCL [Suspect]
     Indication: BACK PAIN
     Route: 048
     Dates: start: 20070906, end: 20070910
  3. DOLIPRANE [Suspect]
     Indication: BACK PAIN
     Route: 048
  4. PLAVIX [Concomitant]
     Route: 065
  5. OGAST [Concomitant]
     Route: 065
  6. LASIX [Concomitant]
     Route: 065
  7. ENALAPRIL MALEATE [Concomitant]
     Route: 065
  8. ATHYMIL [Concomitant]
     Route: 065
  9. MEMANTINE HCL [Concomitant]
     Route: 065
  10. RISPERDAL [Concomitant]
     Route: 065
  11. IMOVANE [Concomitant]
     Route: 065
  12. XANAX [Concomitant]
     Route: 065
  13. FORLAX [Concomitant]
     Route: 065
  14. MORPHINE [Concomitant]
     Route: 065

REACTIONS (5)
  - CYTOLYTIC HEPATITIS [None]
  - DEATH [None]
  - INTESTINAL ISCHAEMIA [None]
  - JAUNDICE CHOLESTATIC [None]
  - SOMNOLENCE [None]
